FAERS Safety Report 23851545 (Version 2)
Quarter: 2024Q2

REPORT INFORMATION
  Report Type: Spontaneous
  Country: TW (occurrence: TW)
  Receive Date: 20240514
  Receipt Date: 20240522
  Transmission Date: 20240716
  Serious: Yes (Death)
  Sender: FDA-Public Use
  Company Number: TW-CHUGAI-2024015320

PATIENT
  Age: 68 Year
  Sex: Female
  Weight: 73.7 kg

DRUGS (10)
  1. ACTEMRA [Suspect]
     Active Substance: TOCILIZUMAB
     Indication: Rheumatoid arthritis
     Dosage: UNK
     Route: 065
     Dates: start: 20190422, end: 20230703
  2. ACTEMRA [Suspect]
     Active Substance: TOCILIZUMAB
     Indication: Rheumatoid arthritis
     Dosage: 162 MG,Q10D-QM
     Route: 058
     Dates: start: 20230905, end: 20231204
  3. METHOLONE [Concomitant]
     Indication: Rheumatoid arthritis
     Dosage: 8 MILLIGRAM, QD
     Dates: start: 20230314
  4. FOLIC ACID [Concomitant]
     Active Substance: FOLIC ACID
     Indication: Prophylaxis
     Dosage: 5 MILLIGRAM, QD
  5. METHOTREXATE [Concomitant]
     Active Substance: METHOTREXATE
     Indication: Rheumatoid arthritis
     Dosage: 7.5 MILLIGRAM, ONCE/WEEK
     Dates: start: 20220613
  6. CELEBREX [Concomitant]
     Active Substance: CELECOXIB
     Indication: Rheumatoid arthritis
     Dosage: 200 MILLIGRAM, BID
     Dates: start: 20160419
  7. SULFASALAZINE [Concomitant]
     Active Substance: SULFASALAZINE
     Indication: Rheumatoid arthritis
     Dosage: 500 MILLIGRAM, BID
     Dates: start: 20160419
  8. TRACETON [Concomitant]
     Indication: Rheumatoid arthritis
     Dosage: 1 TABLET, BID
     Dates: start: 20231218
  9. FUSIDIC ACID [Concomitant]
     Active Substance: FUSIDIC ACID
     Indication: Wound
     Dosage: BID
     Dates: start: 20231002
  10. NEOMYCIN [Concomitant]
     Active Substance: NEOMYCIN
     Indication: Wound
     Dosage: UNK
     Dates: start: 20231002

REACTIONS (3)
  - Breast cancer in situ [Fatal]
  - Colon cancer [Fatal]
  - Metastases to liver [Fatal]

NARRATIVE: CASE EVENT DATE: 20231204
